FAERS Safety Report 25240126 (Version 1)
Quarter: 2025Q2

REPORT INFORMATION
  Report Type: Spontaneous
  Country: TW (occurrence: TW)
  Receive Date: 20250425
  Receipt Date: 20250425
  Transmission Date: 20250717
  Serious: Yes (Death, Other)
  Sender: BRACCO
  Company Number: TW-BRACCO-2025TW02565

PATIENT
  Age: 92 Year
  Sex: Male

DRUGS (1)
  1. MULTIHANCE [Suspect]
     Active Substance: GADOBENATE DIMEGLUMINE
     Indication: Magnetic resonance imaging head
     Route: 042
     Dates: start: 20250409, end: 20250409

REACTIONS (2)
  - Confusional state [Fatal]
  - Sudden death [Fatal]

NARRATIVE: CASE EVENT DATE: 20250409
